FAERS Safety Report 6143880-4 (Version None)
Quarter: 2009Q2

REPORT INFORMATION
  Report Type: 
  Country: None (occurrence: None)
  Receive Date: 20090405
  Receipt Date: 20090324
  Transmission Date: 20091009
  Serious: Yes (Hospitalization, Other)
  Sender: FDA-Public Use
  Company Number: US-PFIZER INC-2009170663

PATIENT
  Sex: Female
  Weight: 75.749 kg

DRUGS (6)
  1. CHANTIX [Suspect]
     Indication: SMOKING CESSATION THERAPY
     Dosage: 0.5 MG, 1X/DAY
     Dates: start: 20090119, end: 20090203
  2. ADVAIR HFA [Concomitant]
     Dosage: UNK
  3. COMBIVENT [Concomitant]
     Dosage: UNK
  4. BACLOFEN [Concomitant]
     Indication: MULTIPLE SCLEROSIS
     Dosage: UNK
  5. MS CONTIN [Concomitant]
     Indication: MULTIPLE SCLEROSIS
     Dosage: UNK
  6. DUONEB [Concomitant]
     Dosage: UNK

REACTIONS (6)
  - DELIRIUM [None]
  - DEPRESSION [None]
  - HALLUCINATION, AUDITORY [None]
  - HALLUCINATION, VISUAL [None]
  - SLEEP TERROR [None]
  - VISUAL IMPAIRMENT [None]
